FAERS Safety Report 7981158-4 (Version None)
Quarter: 2011Q4

REPORT INFORMATION
  Report Type: 
  Country: None (occurrence: None)
  Receive Date: 20111129
  Receipt Date: 20101203
  Transmission Date: 20120403
  Serious: Yes (Other)
  Sender: FDA-Public Use
  Company Number: PHHY2010US83011

PATIENT
  Age: 51 Year
  Sex: Female

DRUGS (2)
  1. LAMISIL [Suspect]
     Indication: ONYCHOMYCOSIS
  2. LUNESTA [Concomitant]

REACTIONS (6)
  - DYSGEUSIA [None]
  - FLUID INTAKE REDUCED [None]
  - AGEUSIA [None]
  - HEAT EXHAUSTION [None]
  - HYPOAESTHESIA ORAL [None]
  - DEHYDRATION [None]
